FAERS Safety Report 20220057 (Version 1)
Quarter: 2021Q4

REPORT INFORMATION
  Report Type: Spontaneous
  Country: US (occurrence: US)
  Receive Date: 20211222
  Receipt Date: 20211222
  Transmission Date: 20220303
  Serious: Yes (Other)
  Sender: FDA-Public Use
  Company Number: US-BEH-2021139765

PATIENT
  Age: 74 Year
  Sex: Female
  Weight: 47.25 kg

DRUGS (1)
  1. HIZENTRA [Suspect]
     Active Substance: HUMAN IMMUNOGLOBULIN G
     Indication: Sjogren^s syndrome
     Dosage: 20 GRAM, QW
     Route: 058

REACTIONS (8)
  - Abdominal discomfort [Unknown]
  - Dyspnoea [Unknown]
  - Fatigue [Unknown]
  - Headache [Unknown]
  - Infusion related reaction [Unknown]
  - Muscle tightness [Unknown]
  - No adverse event [Unknown]
  - Off label use [Unknown]
